FAERS Safety Report 9539809 (Version 1)
Quarter: 2013Q3

REPORT INFORMATION
  Report Type: Spontaneous
  Country: US (occurrence: US)
  Receive Date: 20130920
  Receipt Date: 20130920
  Transmission Date: 20140515
  Serious: No
  Sender: FDA-Public Use
  Company Number: US-PURDUE-USA-2011-0065620

PATIENT
  Age: 52 Year
  Sex: Male

DRUGS (2)
  1. DILAUDID TABLET [Suspect]
     Indication: PAIN
  2. FENTANYL [Suspect]
     Indication: PAIN
     Dosage: 1 PATCH, Q48H
     Dates: start: 20110205

REACTIONS (4)
  - Nausea [Recovered/Resolved]
  - Hyperhidrosis [Recovered/Resolved]
  - Influenza like illness [Recovered/Resolved]
  - Application site pain [Recovered/Resolved]
